FAERS Safety Report 9774814 (Version 1)
Quarter: 2013Q4

REPORT INFORMATION
  Report Type: Spontaneous
  Country: FR (occurrence: FR)
  Receive Date: 20131220
  Receipt Date: 20131220
  Transmission Date: 20140711
  Serious: Yes (Hospitalization)
  Sender: FDA-Public Use
  Company Number: FR-SA-2013SA129196

PATIENT
  Age: 77 Year
  Sex: Male

DRUGS (5)
  1. STILNOX [Suspect]
     Indication: INSOMNIA
     Route: 048
     Dates: start: 20131107, end: 20131108
  2. PARACETAMOL [Suspect]
     Indication: PAIN
     Route: 048
     Dates: start: 20131107, end: 20131108
  3. TOPALGIC [Suspect]
     Indication: PAIN
     Dosage: STRENGTH 50 MG
     Route: 048
     Dates: start: 20131107, end: 20131108
  4. XATRAL [Concomitant]
     Indication: BENIGN PROSTATIC HYPERPLASIA
     Route: 048
     Dates: start: 20131107
  5. EUPANTOL [Concomitant]
     Indication: GASTROOESOPHAGEAL REFLUX DISEASE
     Dosage: DOSE:1 UNIT(S)
     Route: 048
     Dates: start: 20131107

REACTIONS (2)
  - Hepatocellular injury [Recovering/Resolving]
  - Hepatic enzyme abnormal [Recovering/Resolving]
